FAERS Safety Report 6494960-5 (Version None)
Quarter: 2009Q4

REPORT INFORMATION
  Report Type: 
  Country: None (occurrence: None)
  Receive Date: 20091214
  Receipt Date: 20090414
  Transmission Date: 20100525
  Serious: No
  Sender: FDA-Public Use
  Company Number: US-BRISTOL-MYERS SQUIBB COMPANY-14587422

PATIENT
  Age: 29 Year
  Sex: Female
  Weight: 44 kg

DRUGS (2)
  1. ABILIFY [Suspect]
     Indication: BIPOLAR DISORDER
     Dosage: INITIAL DOSE: 2.5MG
  2. KLONOPIN [Concomitant]

REACTIONS (4)
  - AGORAPHOBIA [None]
  - ANXIETY [None]
  - HAEMORRHOIDS [None]
  - RESTLESSNESS [None]
